FAERS Safety Report 23452106 (Version 1)
Quarter: 2024Q1

REPORT INFORMATION
  Report Type: Spontaneous
  Country: CZ (occurrence: CZ)
  Receive Date: 20240129
  Receipt Date: 20240129
  Transmission Date: 20240410
  Serious: Yes (Life-Threatening, Hospitalization, Other)
  Sender: FDA-Public Use
  Company Number: None

PATIENT
  Age: 70 Year
  Sex: Female

DRUGS (6)
  1. PACLITAXEL [Suspect]
     Active Substance: PACLITAXEL
     Indication: Vulval cancer
     Dosage: CARBOPLATIN AUC5 + PACLITAXEL 175 MG/M2 EVERY 3 WEEKS; THE REACTION OCCURRED DURING THE 3RD CYCLE AD
     Route: 042
     Dates: start: 20231116, end: 20240105
  2. Metamizole 500mg [Concomitant]
     Indication: Pain
     Dosage: 1-1-1 WHEN IN PAIN
  3. ASKETON [Concomitant]
     Indication: Product used for unknown indication
     Dosage: 1-1-1
  4. CARBOPLATIN [Concomitant]
     Active Substance: CARBOPLATIN
     Indication: Vulval cancer
     Dosage: CARBOPLATIN AUC5 + PACLITAXEL 175 MG/M2 EVERY 3 WEEKS; THE REACTION OCCURRED DURING THE 3RD CYCLE AD
     Dates: start: 20231116
  5. GRANISETRON HYDROCHLORIDE [Concomitant]
     Active Substance: GRANISETRON HYDROCHLORIDE
     Indication: Vomiting
     Dosage: 1X WHEN VOMITING
  6. LACTULOSE [Concomitant]
     Active Substance: LACTULOSE
     Indication: Product used for unknown indication

REACTIONS (5)
  - Asthenia [Recovered/Resolved]
  - Drug hypersensitivity [Recovered/Resolved]
  - Hypotension [Recovered/Resolved]
  - Oxygen saturation decreased [Recovered/Resolved]
  - Dyspnoea [Recovered/Resolved]

NARRATIVE: CASE EVENT DATE: 20240105
